FAERS Safety Report 22618184 (Version 4)
Quarter: 2023Q4

REPORT INFORMATION
  Report Type: Report from Study
  Country: CA (occurrence: CA)
  Receive Date: 20230620
  Receipt Date: 20231204
  Transmission Date: 20240110
  Serious: Yes (Other)
  Sender: FDA-Public Use
  Company Number: CA-UCBSA-2023024219

PATIENT
  Sex: Male

DRUGS (8)
  1. BRIVARACETAM [Suspect]
     Active Substance: BRIVARACETAM
     Indication: Partial seizures
     Dosage: 75 MILLIGRAM, 2X/DAY (BID) ((50MG PO AM, 100MG PO PM))
     Route: 048
  2. BRIVARACETAM [Suspect]
     Active Substance: BRIVARACETAM
     Dosage: 100 MILLIGRAM, 2X/DAY (BID)
     Route: 048
  3. BRIVARACETAM [Suspect]
     Active Substance: BRIVARACETAM
     Dosage: 50 MG QAM, 100 MG QPM , 2X/DAY (BID)
     Route: 048
     Dates: start: 20230823
  4. BRIVARACETAM [Suspect]
     Active Substance: BRIVARACETAM
     Dosage: 50 MG QAM, 100 MG QPM, 2X/DAY (BID)
     Route: 048
     Dates: start: 2023
  5. BRIVARACETAM [Suspect]
     Active Substance: BRIVARACETAM
     Dosage: 50 MG QAM, 100 MG QPM, 2X/DAY (BID)
     Route: 048
     Dates: start: 2023
  6. BRIVARACETAM [Suspect]
     Active Substance: BRIVARACETAM
     Dosage: 50 MG QAM, 75 MG QPM, 2X/DAY (BID)
     Route: 048
     Dates: start: 2023
  7. VYVANSE [Concomitant]
     Active Substance: LISDEXAMFETAMINE DIMESYLATE
     Indication: Product used for unknown indication
     Dosage: UNK
  8. VITAMIN D3 [Concomitant]
     Active Substance: CHOLECALCIFEROL
     Indication: Product used for unknown indication
     Dosage: UNK

REACTIONS (4)
  - Post-traumatic epilepsy [Unknown]
  - Craniocerebral injury [Unknown]
  - Somnolence [Unknown]
  - Off label use [Unknown]
